FAERS Safety Report 6460284-5 (Version None)
Quarter: 2009Q4

REPORT INFORMATION
  Report Type: 
  Country: None (occurrence: None)
  Receive Date: 20091130
  Receipt Date: 20091117
  Transmission Date: 20100525
  Serious: Yes (Hospitalization)
  Sender: FDA-Public Use
  Company Number: FR-JNJFOC-20091105290

PATIENT
  Age: 25 Year
  Sex: Female

DRUGS (3)
  1. INFLIXIMAB [Suspect]
     Indication: JUVENILE ARTHRITIS
     Dosage: RECEIVED 6 INFUSIONS
     Route: 042
  2. METHOTREXATE [Concomitant]
     Indication: JUVENILE ARTHRITIS
  3. PREDNISONE TAB [Concomitant]
     Indication: JUVENILE ARTHRITIS

REACTIONS (1)
  - DERMATOMYOSITIS [None]
